FAERS Safety Report 4421862-8 (Version None)
Quarter: 2004Q3

REPORT INFORMATION
  Report Type: 
  Country: None (occurrence: None)
  Receive Date: 20040804
  Receipt Date: 20040715
  Transmission Date: 20050211
  Serious: Yes (Life-Threatening, Hospitalization)
  Sender: FDA-Public Use
  Company Number: F01200401558

PATIENT
  Age: 52 Year
  Sex: Male

DRUGS (14)
  1. OXALIPLATIN - SOLUTION - 130 MG/M2 [Suspect]
     Indication: COLORECTAL CANCER
     Dosage: 130 MG/M2 Q3W, INTRAVENOUS NOS
     Route: 042
     Dates: start: 20040611, end: 20040611
  2. CAPECITABINE - TABLET - 850 MG/M2 [Suspect]
     Dosage: 850 MG/M2 TWICE DAILY FROM D1 TO D15, Q3W, ORAL
     Route: 048
     Dates: start: 20040611, end: 20040614
  3. AVASTIN [Suspect]
     Dosage: 7.5 MG/KG OVER 30-90 MINUTES IV INFUSION ON DAY 1, Q3W INTRAVENOUS NOS
     Route: 042
     Dates: start: 20040611, end: 20040611
  4. TYLENOL [Concomitant]
  5. KANKA [Concomitant]
  6. ATENOLOL [Concomitant]
  7. GAVISCON (ALGINATE SODIUM+BICARBONATE SODIUM+HYDROXIDE ALUMINIUM) [Concomitant]
  8. BENTYL [Concomitant]
  9. DULCOLAX [Concomitant]
  10. LORTAB (HYDROCODONE TARTRATE+PARACETAMOL) [Concomitant]
  11. FLAGYL [Concomitant]
  12. ATIVAN [Concomitant]
  13. PEPCID [Concomitant]
  14. DIGOXIN [Concomitant]

REACTIONS (23)
  - APPENDIX DISORDER [None]
  - ATRIAL FIBRILLATION [None]
  - BLOOD BILIRUBIN INCREASED [None]
  - BLOOD CREATININE DECREASED [None]
  - BLOOD PRESSURE DIASTOLIC INCREASED [None]
  - BLOOD SODIUM DECREASED [None]
  - COLITIS [None]
  - COLONIC OBSTRUCTION [None]
  - DILATATION ATRIAL [None]
  - ESCHERICHIA INFECTION [None]
  - FLATULENCE [None]
  - HAEMOGLOBIN DECREASED [None]
  - INTESTINAL ISCHAEMIA [None]
  - LARGE INTESTINE PERFORATION [None]
  - METASTASES TO LIVER [None]
  - PERITONEAL FLUID ANALYSIS ABNORMAL [None]
  - PERITONITIS [None]
  - PLATELET COUNT DECREASED [None]
  - PULMONARY HYPERTENSION [None]
  - SEPSIS [None]
  - SINUS TACHYCARDIA [None]
  - TRICUSPID VALVE INCOMPETENCE [None]
  - VENTRICULAR HYPERTROPHY [None]
